FAERS Safety Report 10405874 (Version 4)
Quarter: 2014Q4

REPORT INFORMATION
  Report Type: Spontaneous
  Country: KR (occurrence: KR)
  Receive Date: 20140825
  Receipt Date: 20141008
  Transmission Date: 20150528
  Serious: Yes (Other)
  Sender: FDA-Public Use
  Company Number: KR-009507513-1408KOR013024

PATIENT
  Age: 76 Year
  Sex: Male
  Weight: 47 kg

DRUGS (13)
  1. BRIDION [Suspect]
     Active Substance: SUGAMMADEX
     Indication: NEUROMUSCULAR BLOCKADE REVERSAL
     Dosage: 94 MG, ONCE, 2MG/KG
     Route: 042
     Dates: start: 20140811, end: 20140811
  2. ROCURONIUM BROMIDE. [Suspect]
     Active Substance: ROCURONIUM BROMIDE
     Indication: ENDOTRACHEAL INTUBATION
     Dosage: 50 MG, QD
     Route: 042
     Dates: start: 20140811, end: 20140811
  3. ROCURONIUM BROMIDE. [Suspect]
     Active Substance: ROCURONIUM BROMIDE
     Indication: MUSCLE RELAXANT THERAPY
     Dosage: 20 MG, QD
     Route: 042
     Dates: start: 20140811, end: 20140811
  4. VESICARE [Concomitant]
     Active Substance: SOLIFENACIN SUCCINATE
     Indication: DYSURIA
     Dosage: 5 MG, TID
     Route: 048
  5. FLASINYL [Concomitant]
     Indication: BOWEL PREPARATION
     Dosage: 500 MG, TID
     Route: 048
     Dates: start: 20140810, end: 20140810
  6. VENTOLIN [Concomitant]
     Active Substance: ALBUTEROL SULFATE
     Indication: TRACHEAL DILATATION
     Dosage: 0.1 MG, BID
     Route: 055
     Dates: start: 20140811
  7. CORTISOLU [Concomitant]
     Indication: TRACHEAL DILATATION
     Dosage: 100 MG, QD
     Route: 042
     Dates: start: 20140811
  8. TAGAMET [Concomitant]
     Active Substance: CIMETIDINE
     Indication: ANTACID THERAPY
     Dosage: 200 MG, BID
     Route: 042
     Dates: start: 20140809, end: 20140810
  9. ROCURONIUM BROMIDE. [Suspect]
     Active Substance: ROCURONIUM BROMIDE
     Dosage: 10 MG, QD
     Route: 042
     Dates: start: 20140811, end: 20140811
  10. GLIATILIN [Concomitant]
     Indication: CEREBRAL INFARCTION
     Dosage: 400 MG, TID
     Route: 048
  11. GASTER [Concomitant]
     Active Substance: FAMOTIDINE
     Indication: ANTACID THERAPY
     Dosage: 20 MG, BID
     Route: 042
     Dates: start: 20140811
  12. FONTIAM [Concomitant]
     Indication: INFECTION PROPHYLAXIS
     Dosage: 1 G, TID
     Route: 042
     Dates: start: 20140811
  13. HARNAL [Concomitant]
     Active Substance: TAMSULOSIN HYDROCHLORIDE
     Indication: DYSURIA
     Dosage: 0.2 MG, QD
     Route: 048

REACTIONS (1)
  - Delirium [Recovered/Resolved]

NARRATIVE: CASE EVENT DATE: 20140812
